FAERS Safety Report 7200447-4 (Version None)
Quarter: 2010Q4

REPORT INFORMATION
  Report Type: 
  Country: None (occurrence: None)
  Receive Date: 20101228
  Receipt Date: 20101222
  Transmission Date: 20110411
  Serious: Yes (Hospitalization)
  Sender: FDA-Public Use
  Company Number: DE-BAYER-201038247GPV

PATIENT
  Sex: Male
  Weight: 80 kg

DRUGS (14)
  1. NEXAVAR [Suspect]
     Indication: HEPATIC NEOPLASM MALIGNANT
     Route: 048
     Dates: start: 20100615, end: 20100630
  2. NEXAVAR [Suspect]
     Dosage: 400 MG (DAILY DOSE), QD, ORAL
     Route: 048
     Dates: start: 20100707, end: 20100724
  3. NEXAVAR [Suspect]
     Dosage: 600 MG (DAILY DOSE), QD, ORAL
     Route: 048
     Dates: start: 20100725, end: 20100728
  4. NEXAVAR [Suspect]
     Dosage: UNK
     Dates: start: 20100729, end: 20100803
  5. NEXAVAR [Suspect]
     Dosage: 400 MG (DAILY DOSE), QD, ORAL
     Route: 048
     Dates: start: 20100804
  6. RAMIPRIL [Concomitant]
     Dosage: 1-0-0
  7. PANTOPRAZOLE [Concomitant]
     Dosage: 1-0-0
  8. ALLOPURINOL [Concomitant]
     Dosage: 1-0-0
  9. SPIRONOLACTONE [Concomitant]
     Dosage: 1-0-0
  10. TORSEMIDE [Concomitant]
  11. TORSEMIDE [Concomitant]
     Dosage: DOSE REDUCED
  12. METFORMIN [Concomitant]
     Dosage: CURRENTLY PAUSED
  13. COLECALCIFEROL [Concomitant]
     Dosage: 400 IU
  14. CALCIMAGON-D3 [Concomitant]
     Dosage: 1-0-0

REACTIONS (4)
  - AGEUSIA [None]
  - ANOSMIA [None]
  - CONFUSIONAL STATE [None]
  - HEPATIC ENCEPHALOPATHY [None]
